FAERS Safety Report 24095744 (Version 1)
Quarter: 2024Q3

REPORT INFORMATION
  Report Type: Spontaneous
  Country: CN (occurrence: CN)
  Receive Date: 20240716
  Receipt Date: 20240716
  Transmission Date: 20241017
  Serious: Yes (Hospitalization)
  Sender: PFIZER
  Company Number: CN-PFIZER INC-PV202400091549

PATIENT
  Age: 85 Year
  Sex: Male
  Weight: 67 kg

DRUGS (3)
  1. LINEZOLID [Suspect]
     Active Substance: LINEZOLID
     Indication: Anti-infective therapy
     Dosage: 0.6 G, 2X/DAY
     Route: 041
     Dates: start: 20201113, end: 20201119
  2. MEZLOCILLIN SODIUM\SULBACTAM SODIUM [Suspect]
     Active Substance: MEZLOCILLIN SODIUM\SULBACTAM SODIUM
     Indication: Anti-infective therapy
     Dosage: 2.5 G, 3X/DAY
     Route: 041
     Dates: start: 20201113, end: 20201121
  3. ASPIRIN [Concomitant]
     Active Substance: ASPIRIN
     Dosage: UNK
     Dates: end: 20201119

REACTIONS (2)
  - Platelet count decreased [Not Recovered/Not Resolved]
  - Haematuria [Not Recovered/Not Resolved]

NARRATIVE: CASE EVENT DATE: 20201121
